FAERS Safety Report 8185311-9 (Version None)
Quarter: 2012Q1

REPORT INFORMATION
  Report Type: 
  Country: None (occurrence: None)
  Receive Date: 20120305
  Receipt Date: 20120227
  Transmission Date: 20120608
  Serious: Yes (Disabling, Other)
  Sender: FDA-Public Use
  Company Number: PHHY2012MX017300

PATIENT
  Age: 71 Year
  Sex: Female

DRUGS (2)
  1. FENOFIBRATE [Concomitant]
     Indication: BLOOD TRIGLYCERIDES INCREASED
     Dosage: UNK UKN, UNK
  2. ZOLEDRONOC ACID [Suspect]
     Indication: OSTEOPOROSIS
     Dosage: 5 MG/100 ML/EACH YEAR
     Route: 042
     Dates: start: 20101201

REACTIONS (7)
  - CAROTID ARTERY OCCLUSION [None]
  - EYE HAEMORRHAGE [None]
  - DRY EYE [None]
  - AORTIC ANEURYSM [None]
  - VISION BLURRED [None]
  - EYE ALLERGY [None]
  - DARK CIRCLES UNDER EYES [None]
